FAERS Safety Report 6682310-0 (Version None)
Quarter: 2010Q2

REPORT INFORMATION
  Report Type: 
  Country: None (occurrence: None)
  Receive Date: 20100414
  Receipt Date: 20100414
  Transmission Date: 20101027
  Serious: Yes (Other)
  Sender: FDA-Public Use
  Company Number: None

PATIENT
  Age: 53 Year
  Sex: Female
  Weight: 133.8111 kg

DRUGS (3)
  1. FEXOFENADINE HCL [Suspect]
     Indication: RHINITIS ALLERGIC
     Dosage: 1 PO O D
     Route: 048
     Dates: start: 20090921
  2. CETERIZINE 10 MG [Suspect]
     Indication: RHINITIS ALLERGIC
     Dosage: 1 PO OD
     Dates: start: 20080708
  3. BRAND NAME ALLEGRA [Concomitant]

REACTIONS (2)
  - DIZZINESS [None]
  - DRUG HYPERSENSITIVITY [None]
